FAERS Safety Report 9023763 (Version 3)
Quarter: 2013Q1

REPORT INFORMATION
  Report Type: Spontaneous
  Country: AT (occurrence: AT)
  Receive Date: 20130121
  Receipt Date: 20130121
  Transmission Date: 20140127
  Serious: Yes (Other)
  Sender: FDA-Public Use
  Company Number: AT-JNJFOC-20130109469

PATIENT
  Sex: Female
  Weight: 65 kg

DRUGS (2)
  1. IMODIUM [Suspect]
     Indication: PRODUCT USED FOR UNKNOWN INDICATION
     Route: 065
  2. XELODA [Concomitant]
     Indication: COLORECTAL CANCER METASTATIC
     Route: 065
     Dates: start: 20120323

REACTIONS (1)
  - Subileus [Recovered/Resolved]
